FAERS Safety Report 4531494-9 (Version None)
Quarter: 2004Q4

REPORT INFORMATION
  Report Type: 
  Country: None (occurrence: None)
  Receive Date: 20041216
  Receipt Date: 20041124
  Transmission Date: 20050328
  Serious: Yes (Hospitalization)
  Sender: FDA-Public Use
  Company Number: US_0411108688

PATIENT
  Age: 76 Year
  Sex: Female
  Weight: 57 kg

DRUGS (7)
  1. DULOXETINE HYDROCHLORIDE [Suspect]
     Indication: URINARY INCONTINENCE
     Dosage: 40 MG/2 DAY
     Dates: start: 20041027, end: 20041116
  2. XANAX (ALPRAZOLAM DUM) [Concomitant]
  3. COUMADIN [Concomitant]
  4. PRILOSEC (OMEPRAZOLE RATIOPHARM) [Concomitant]
  5. VITAMIN CAP [Concomitant]
  6. FOSAMAX [Concomitant]
  7. VITAMIN 12 [Concomitant]

REACTIONS (7)
  - ATELECTASIS [None]
  - COAGULOPATHY [None]
  - HAEMATEMESIS [None]
  - INTERNATIONAL NORMALISED RATIO INCREASED [None]
  - LUNG DISORDER [None]
  - PROTHROMBIN TIME PROLONGED [None]
  - SCAR [None]
